FAERS Safety Report 13496953 (Version 3)
Quarter: 2017Q2

REPORT INFORMATION
  Report Type: Report from Study
  Country: US (occurrence: US)
  Receive Date: 20170428
  Receipt Date: 20170515
  Transmission Date: 20170830
  Serious: Yes (Death, Hospitalization)
  Sender: FDA-Public Use
  Company Number: US-EXELIXIS-CABO-17008988

PATIENT
  Age: 51 Year
  Sex: Female
  Weight: 41.72 kg

DRUGS (13)
  1. ZOFRAN [Concomitant]
     Active Substance: ONDANSETRON HYDROCHLORIDE
  2. REMERON [Concomitant]
     Active Substance: MIRTAZAPINE
  3. CLARITIN [Concomitant]
     Active Substance: LORATADINE
  4. DILAUDID [Concomitant]
     Active Substance: HYDROMORPHONE HYDROCHLORIDE
  5. FENTANYL. [Concomitant]
     Active Substance: FENTANYL
  6. IPRATROPIUM [Concomitant]
     Active Substance: IPRATROPIUM
  7. TIGECYCLINE. [Concomitant]
     Active Substance: TIGECYCLINE
  8. CABOMETYX [Suspect]
     Active Substance: CABOZANTINIB S-MALATE
     Indication: RENAL CANCER
     Dosage: 60 MG, QD
     Route: 048
     Dates: start: 20170331, end: 201704
  9. SANCUSO [Concomitant]
     Active Substance: GRANISETRON
  10. HYDROCODONE [Concomitant]
     Active Substance: HYDROCODONE
  11. DUONEB [Concomitant]
     Active Substance: ALBUTEROL SULFATE\IPRATROPIUM BROMIDE
  12. TRAMADOL. [Concomitant]
     Active Substance: TRAMADOL
  13. MERREM [Concomitant]
     Active Substance: MEROPENEM

REACTIONS (1)
  - Lung disorder [Fatal]

NARRATIVE: CASE EVENT DATE: 20170413
